FAERS Safety Report 7441108-6 (Version None)
Quarter: 2011Q2

REPORT INFORMATION
  Report Type: 
  Country: None (occurrence: None)
  Receive Date: 20110427
  Receipt Date: 20110419
  Transmission Date: 20111010
  Serious: Yes (Other)
  Sender: FDA-Public Use
  Company Number: US-MYLANLABS-2011S1008122

PATIENT
  Sex: Female

DRUGS (2)
  1. TRIAMTERENE AND HYDROCHLOROTHIAZIDE [Suspect]
     Route: 048
     Dates: start: 20110417, end: 20110417
  2. TRIAMTERENE AND HYDROCHLOROTHIAZIDE [Suspect]
     Indication: BLOOD PRESSURE INCREASED
     Route: 048

REACTIONS (6)
  - RECTAL STENOSIS [None]
  - URETHRAL STENOSIS [None]
  - BOWEL MOVEMENT IRREGULARITY [None]
  - DYSURIA [None]
  - GENITAL PAIN [None]
  - REACTION TO DRUG EXCIPIENTS [None]
